FAERS Safety Report 12788932 (Version 2)
Quarter: 2016Q4

REPORT INFORMATION
  Report Type: Spontaneous
  Country: US (occurrence: US)
  Receive Date: 20160928
  Receipt Date: 20161004
  Transmission Date: 20170207
  Serious: No
  Sender: FDA-Public Use
  Company Number: US-PFIZER INC-2016453290

PATIENT
  Age: 53 Year
  Sex: Male

DRUGS (3)
  1. SEROQUEL [Concomitant]
     Active Substance: QUETIAPINE FUMARATE
     Dosage: UNK
  2. LYRICA [Suspect]
     Active Substance: PREGABALIN
     Indication: DIABETIC NEUROPATHY
  3. LYRICA [Suspect]
     Active Substance: PREGABALIN
     Indication: FIBROMYALGIA
     Dosage: 50 MG, 2X/DAY
     Route: 048
     Dates: start: 201503

REACTIONS (6)
  - Gait disturbance [Unknown]
  - Blood cholesterol abnormal [Recovering/Resolving]
  - Asthma [Recovering/Resolving]
  - Arthritis [Recovering/Resolving]
  - Speech disorder [Unknown]
  - Arthropathy [Recovering/Resolving]
